FAERS Safety Report 15639927 (Version 1)
Quarter: 2018Q4

REPORT INFORMATION
  Report Type: Spontaneous
  Country: US (occurrence: US)
  Receive Date: 20181120
  Receipt Date: 20181120
  Transmission Date: 20190205
  Serious: Yes (Other)
  Sender: FDA-Public Use
  Company Number: US-OTSUKA-2018_021944

PATIENT
  Age: 64 Year
  Sex: Male

DRUGS (83)
  1. ABILIFY [Suspect]
     Active Substance: ARIPIPRAZOLE
     Dosage: 10 MG, QD (STRENGHT: 20 MG) TAKE ONE HALF TABLET
     Route: 048
     Dates: start: 20131217, end: 20141218
  2. ABILIFY [Suspect]
     Active Substance: ARIPIPRAZOLE
     Dosage: 10 MG, QD (STRENGHT: 20 MG) TAKE ONE HALF TABLET
     Route: 048
     Dates: start: 20140108, end: 20150109
  3. DIVALPROEX [Concomitant]
     Active Substance: DIVALPROEX SODIUM
     Indication: AFFECTIVE DISORDER
     Dosage: 500 MG, AT BED TIME
     Route: 048
     Dates: start: 20170703, end: 20180404
  4. ZIPRASIDONE. [Concomitant]
     Active Substance: ZIPRASIDONE
     Indication: AFFECTIVE DISORDER
     Dosage: 40 MG, BID
     Route: 048
     Dates: start: 20170207, end: 20180208
  5. ALFUZOSIN HCL [Concomitant]
     Active Substance: ALFUZOSIN HYDROCHLORIDE
     Indication: BENIGN PROSTATIC HYPERPLASIA
     Dosage: 10 MG, QD
     Route: 048
     Dates: start: 20170126, end: 20180127
  6. PRAMOXINE/HYDROCORTISONE [Concomitant]
     Dosage: 1 DF, QD AS NEEDED (2.5/1%)
     Route: 054
     Dates: start: 20130424, end: 20130425
  7. PNEUMOVAX 23 [Concomitant]
     Active Substance: PNEUMOCOCCAL VACCINE, POLYVALENT 23
     Indication: IMMUNISATION
     Dosage: 0.5 ML, UNK
     Route: 030
  8. VICTOZA [Concomitant]
     Active Substance: LIRAGLUTIDE
     Indication: PRODUCT USED FOR UNKNOWN INDICATION
     Dosage: UNK
     Route: 065
  9. OXYCODONE HYDROCHLORIDE. [Concomitant]
     Active Substance: OXYCODONE HYDROCHLORIDE
     Dosage: STRENGTH: 5 MG, TAKE ONE/TWO TABLET AS NEEDED EVERY 8 HRS
     Route: 048
     Dates: start: 20140828, end: 20140927
  10. AMLODIPINE BESYLATE. [Concomitant]
     Active Substance: AMLODIPINE BESYLATE
     Indication: BLOOD PRESSURE INCREASED
     Dosage: 5 MG, QD
     Route: 048
     Dates: start: 20150908, end: 20160908
  11. FLUTICASONE. [Concomitant]
     Active Substance: FLUTICASONE
     Dosage: 1 DF, QD (INSTALL 1 SPRAY IN EACH NOSTRIL)
     Route: 045
  12. PNEUMOCOCCAL 13 VALENT VACCINE [Concomitant]
     Active Substance: PNEUMOCOCCAL 13-VALENT CONJUGATE VACCINE
     Indication: IMMUNISATION
     Dosage: 0.5 ML, UNK
     Route: 030
     Dates: start: 20151119, end: 20151219
  13. TAMSULOSIN HCL [Concomitant]
     Active Substance: TAMSULOSIN HYDROCHLORIDE
     Dosage: 0.4 MG, QD AFTER MEAL
     Route: 048
     Dates: start: 20130108, end: 20140109
  14. PRAMOXINE/HYDROCORTISONE [Concomitant]
     Indication: HAEMORRHOIDS
     Dosage: 1 DF, QD AS NEEDED
     Route: 054
     Dates: start: 20130108, end: 20140109
  15. HEPATITIS B VACCINE RECOMBINANT [Concomitant]
     Active Substance: HEPATITIS B VIRUS HBSAG SURFACE PROTEIN ANTIGEN
     Indication: IMMUNISATION
     Dosage: 0.5 MG, (STRENGTH: 20MCG/ML)
     Route: 030
     Dates: start: 20131021, end: 20131120
  16. BISACODYL. [Concomitant]
     Active Substance: BISACODYL
     Dosage: 20 MG, QD (STRENGTH: 5 MG, TAKE FOUR TABLETS AS A SINGLE DOSE)
     Route: 048
     Dates: start: 20130624, end: 20140623
  17. LOSARTAN. [Concomitant]
     Active Substance: LOSARTAN
     Indication: PRODUCT USED FOR UNKNOWN INDICATION
     Dosage: UNK
     Route: 065
  18. PNEUMOCOCCAL CONJUGATE VACCINE [Concomitant]
     Active Substance: PNEUMOCOCCAL VACCINE POLYVALENT
     Indication: IMMUNISATION
     Dosage: UNK
     Route: 065
     Dates: start: 20151119, end: 20151119
  19. CORTISONE [Concomitant]
     Active Substance: CORTISONE\HYDROCORTISONE
     Indication: PAIN
     Dosage: UNK
     Route: 065
  20. ABILIFY [Suspect]
     Active Substance: ARIPIPRAZOLE
     Indication: AFFECTIVE DISORDER
     Dosage: UNK
     Route: 065
     Dates: start: 20040101
  21. ABILIFY [Suspect]
     Active Substance: ARIPIPRAZOLE
     Dosage: 10 MG, QD (STRENGHT: 20 MG) TAKE ONE HALF TABLET
     Route: 048
     Dates: start: 20140902, end: 20150903
  22. ABILIFY [Suspect]
     Active Substance: ARIPIPRAZOLE
     Dosage: 10 MG, QD (STRENGHT: 20 MG) TAKE ONE HALF TABLET
     Route: 048
     Dates: start: 20160108, end: 20170108
  23. OXYCODONE HYDROCHLORIDE. [Concomitant]
     Active Substance: OXYCODONE HYDROCHLORIDE
     Dosage: STRENGTH: 5 MG, TAKE ONE/TWO TABLET AS NEEDED EVERY 8 HRS
     Route: 048
     Dates: start: 20140409, end: 20140509
  24. OXYCODONE HYDROCHLORIDE. [Concomitant]
     Active Substance: OXYCODONE HYDROCHLORIDE
     Dosage: STRENGTH: 5 MG, TAKE ONE/TWO TABLET AS NEEDED EVERY 8 HRS
     Route: 048
     Dates: start: 20131218, end: 20140117
  25. TAMSULOSIN HCL [Concomitant]
     Active Substance: TAMSULOSIN HYDROCHLORIDE
     Dosage: 0.4 MG, QD AFTER MEAL
     Route: 048
  26. IBUPROFEN. [Concomitant]
     Active Substance: IBUPROFEN
     Indication: INFLAMMATION
     Dosage: 800 MG, TID
     Route: 048
     Dates: start: 20120830, end: 20130831
  27. ABILIFY [Suspect]
     Active Substance: ARIPIPRAZOLE
     Dosage: 15 MG, QD (STRENGTH: 30 MG) TAKE ONE HALF TABLET
     Route: 048
     Dates: start: 20120814, end: 20130815
  28. ABILIFY [Suspect]
     Active Substance: ARIPIPRAZOLE
     Dosage: 20 MG, QD
     Route: 048
     Dates: start: 20160513, end: 20170514
  29. ALFUZOSIN HCL [Concomitant]
     Active Substance: ALFUZOSIN HYDROCHLORIDE
     Dosage: 10 MG, QD
     Route: 048
     Dates: start: 20160524, end: 20170525
  30. OXYCODONE HYDROCHLORIDE. [Concomitant]
     Active Substance: OXYCODONE HYDROCHLORIDE
     Indication: OSTEOARTHRITIS
     Dosage: STRENGTH: 5 MG, TAKE ONE/TWO TABLET AS NEEDED EVERY 8 HRS
     Route: 048
     Dates: start: 20160524, end: 20160623
  31. OXYCODONE HYDROCHLORIDE. [Concomitant]
     Active Substance: OXYCODONE HYDROCHLORIDE
     Dosage: STRENGTH: 5 MG, TAKE ONE/TWO TABLET AS NEEDED EVERY 8 HRS
     Route: 048
     Dates: start: 20160112, end: 20160211
  32. AMLODIPINE BESYLATE. [Concomitant]
     Active Substance: AMLODIPINE BESYLATE
     Indication: CARDIAC DISORDER
     Dosage: 5 MG, QD
     Route: 048
     Dates: start: 20140904, end: 20150905
  33. AMLODIPINE BESYLATE. [Concomitant]
     Active Substance: AMLODIPINE BESYLATE
     Dosage: 5 MG, QD
     Route: 048
     Dates: start: 20120208, end: 20130208
  34. AMLODIPINE BESYLATE. [Concomitant]
     Active Substance: AMLODIPINE BESYLATE
     Dosage: 5 MG, UNK
     Route: 048
  35. FLUTICASONE. [Concomitant]
     Active Substance: FLUTICASONE
     Indication: HYPERSENSITIVITY
     Dosage: 1 DF, QD (INSTALL 1 SPRAY IN EACH NOSTRIL)
     Route: 045
     Dates: start: 20150805, end: 20160805
  36. TAMSULOSIN HCL [Concomitant]
     Active Substance: TAMSULOSIN HYDROCHLORIDE
     Indication: BENIGN PROSTATIC HYPERPLASIA
     Dosage: 0.4 MG, QD AFTER MEAL
     Route: 048
     Dates: start: 20150911, end: 20151210
  37. TAMSULOSIN HCL [Concomitant]
     Active Substance: TAMSULOSIN HYDROCHLORIDE
     Dosage: 0.4 MG, QD AFTER MEAL
     Route: 048
     Dates: start: 20120208, end: 20130208
  38. ZOSTER (ACYCLOVIR) [Concomitant]
     Active Substance: ACYCLOVIR
     Indication: IMMUNISATION
     Dosage: 0.65 ML, INJECT UNDER THE SKIN ONSE TIME
     Route: 065
     Dates: start: 20131021, end: 20140119
  39. HEPATITIS B VACCINE RECOMBINANT [Concomitant]
     Active Substance: HEPATITIS B VIRUS HBSAG SURFACE PROTEIN ANTIGEN
     Dosage: 0.5 MG, (STRENGTH: 20MCG/ML)
     Route: 030
     Dates: start: 20130528, end: 20130627
  40. HEPATITIS B VACCINE RECOMBINANT [Concomitant]
     Active Substance: HEPATITIS B VIRUS HBSAG SURFACE PROTEIN ANTIGEN
     Dosage: 0.5 MG, (STRENGTH: 20MCG/ML)
     Route: 030
  41. FUROSEMIDE. [Concomitant]
     Active Substance: FUROSEMIDE
     Indication: PRODUCT USED FOR UNKNOWN INDICATION
     Dosage: UNK
     Route: 065
  42. EDARBYCLOR [Concomitant]
     Active Substance: AZILSARTAN KAMEDOXOMIL\CHLORTHALIDONE
     Indication: PRODUCT USED FOR UNKNOWN INDICATION
     Dosage: UNK
     Route: 065
  43. INFLUENZA VACCINE [Concomitant]
     Active Substance: INFLUENZA VIRUS VACCINE
     Indication: IMMUNISATION
     Dosage: UNK
     Route: 065
     Dates: start: 2013, end: 2014
  44. ALFUZOSIN HCL [Concomitant]
     Active Substance: ALFUZOSIN HYDROCHLORIDE
     Dosage: 10 MG, QD
     Route: 048
     Dates: start: 20160112, end: 20170112
  45. EUFLEXXA [Concomitant]
     Active Substance: HYALURONATE SODIUM
     Dosage: STRENGTH: 20 MG 10 MG/ML (INJECT 20 MG ONCE A WEEKE)
     Route: 014
  46. OXYCODONE HYDROCHLORIDE. [Concomitant]
     Active Substance: OXYCODONE HYDROCHLORIDE
     Dosage: STRENGTH: 5 MG, TAKE ONE/TWO TABLET AS NEEDED EVERY 8 HRS
     Route: 048
     Dates: start: 20160301, end: 20160331
  47. OXYCODONE HYDROCHLORIDE. [Concomitant]
     Active Substance: OXYCODONE HYDROCHLORIDE
     Dosage: STRENGTH: 5 MG, TAKE ONE/TWO TABLET AS NEEDED EVERY 8 HRS
     Route: 048
     Dates: start: 20150925, end: 20151025
  48. OXYCODONE HYDROCHLORIDE. [Concomitant]
     Active Substance: OXYCODONE HYDROCHLORIDE
     Dosage: STRENGTH: 5 MG, TAKE ONE/TWO TABLET AS NEEDED EVERY 8 HRS
     Route: 048
     Dates: start: 20150205, end: 20150327
  49. OXYCODONE HYDROCHLORIDE. [Concomitant]
     Active Substance: OXYCODONE HYDROCHLORIDE
     Dosage: STRENGTH: 5 MG, TAKE ONE/TWO TABLET AS NEEDED EVERY 8 HRS
     Route: 048
     Dates: start: 20141215, end: 20150114
  50. OXYCODONE HYDROCHLORIDE. [Concomitant]
     Active Substance: OXYCODONE HYDROCHLORIDE
     Dosage: STRENGTH: 5 MG, TAKE ONE/TWO TABLET AS NEEDED EVERY 8 HRS
     Route: 048
     Dates: start: 20140703, end: 20140802
  51. OXYCODONE HYDROCHLORIDE. [Concomitant]
     Active Substance: OXYCODONE HYDROCHLORIDE
     Dosage: STRENGTH: 5 MG, TAKE ONE/TWO TABLET AS NEEDED EVERY 8 HRS
     Route: 048
     Dates: start: 20140305, end: 20140404
  52. TAMSULOSIN HCL [Concomitant]
     Active Substance: TAMSULOSIN HYDROCHLORIDE
     Dosage: 0.4 MG, QD AFTER MEAL
     Route: 048
     Dates: start: 20140904, end: 20150905
  53. ZOSTER (ACYCLOVIR) [Concomitant]
     Active Substance: ACYCLOVIR
     Dosage: 0.65 ML, INJECT UNDER THE SKIN ONSE TIME
     Route: 065
  54. DIPHENHYDRAMINE HCL [Concomitant]
     Active Substance: DIPHENHYDRAMINE HYDROCHLORIDE
     Indication: PRODUCT USED FOR UNKNOWN INDICATION
     Dosage: 25 MG, QD
     Route: 048
  55. ABILIFY [Suspect]
     Active Substance: ARIPIPRAZOLE
     Dosage: 10 MG, QD (STRENGHT: 20 MG) TAKE ONE HALF TABLET
     Route: 048
     Dates: start: 20150512, end: 20160512
  56. ALFUZOSIN HCL [Concomitant]
     Active Substance: ALFUZOSIN HYDROCHLORIDE
     Dosage: 10 MG, QD
     Route: 048
  57. EUFLEXXA [Concomitant]
     Active Substance: HYALURONATE SODIUM
     Indication: OSTEOARTHRITIS
     Dosage: STRENGTH: 20 MG 10 MG/ML (INJECT 20 MG ONCE A WEEKE)
     Route: 014
     Dates: start: 20160329, end: 20170330
  58. OXYCODONE HYDROCHLORIDE. [Concomitant]
     Active Substance: OXYCODONE HYDROCHLORIDE
     Indication: PAIN
     Dosage: 5 MG, TID (AS NEEDED)
     Route: 048
     Dates: start: 20161004, end: 20161103
  59. AMLODIPINE BESYLATE. [Concomitant]
     Active Substance: AMLODIPINE BESYLATE
     Dosage: 5 MG, QD
     Route: 048
     Dates: start: 20130108, end: 20140109
  60. FLUNISOLIDE. [Concomitant]
     Active Substance: FLUNISOLIDE
     Dosage: 0.025%, 200D 1 DF BID
     Route: 045
  61. HEPATITIS B VACCINE RECOMBINANT [Concomitant]
     Active Substance: HEPATITIS B VIRUS HBSAG SURFACE PROTEIN ANTIGEN
     Dosage: 0.5 MG, (STRENGTH: 20MCG/ML)
     Route: 030
  62. BISACODYL. [Concomitant]
     Active Substance: BISACODYL
     Indication: PRODUCT USED FOR UNKNOWN INDICATION
     Dosage: 20 MG, QD (STRENGTH: 5 MG, TAKE FOUR TABLETS AS A SINGLE DOSE)
     Route: 048
     Dates: start: 20130524, end: 20130623
  63. METPROLOL [Concomitant]
     Active Substance: METOPROLOL
     Indication: PRODUCT USED FOR UNKNOWN INDICATION
     Dosage: 25 MG, UNK
     Route: 048
  64. ABILIFY [Suspect]
     Active Substance: ARIPIPRAZOLE
     Dosage: 15 MG, QD (STRENGTH: 30 MG) TAKE ONE HALF TABLET
     Route: 048
     Dates: start: 20130530, end: 20140531
  65. OXYCODONE HYDROCHLORIDE. [Concomitant]
     Active Substance: OXYCODONE HYDROCHLORIDE
     Dosage: STRENGTH: 5 MG, TAKE ONE/TWO TABLET AS NEEDED EVERY 8 HRS
     Route: 048
     Dates: start: 20151119, end: 20151219
  66. AMLODIPINE BESYLATE. [Concomitant]
     Active Substance: AMLODIPINE BESYLATE
     Dosage: 5 MG, QD
     Route: 048
     Dates: start: 20131022, end: 20141023
  67. AMLODIPINE BESYLATE. [Concomitant]
     Active Substance: AMLODIPINE BESYLATE
     Dosage: 5 MG, QD
     Route: 048
     Dates: start: 20130611, end: 20130612
  68. TAMSULOSIN HCL [Concomitant]
     Active Substance: TAMSULOSIN HYDROCHLORIDE
     Dosage: 0.4 MG, QD AFTER MEAL
     Route: 048
     Dates: start: 20131022, end: 20141023
  69. TAMSULOSIN HCL [Concomitant]
     Active Substance: TAMSULOSIN HYDROCHLORIDE
     Dosage: 0.4 MG, QD AFTER MEAL
     Route: 048
     Dates: start: 20120611, end: 20131112
  70. FLUNISOLIDE. [Concomitant]
     Active Substance: FLUNISOLIDE
     Indication: HYPERSENSITIVITY
     Dosage: 0.025%, 200D 1 DF BID
     Route: 045
     Dates: start: 20140903, end: 20150904
  71. IBUPROFEN. [Concomitant]
     Active Substance: IBUPROFEN
     Indication: PAIN
  72. FINASTERIDE. [Concomitant]
     Active Substance: FINASTERIDE
     Indication: BENIGN PROSTATIC HYPERPLASIA
     Dosage: 5 MG, QD
     Route: 048
     Dates: start: 20120611, end: 20130612
  73. SILDENAFIL CITRATE. [Concomitant]
     Active Substance: SILDENAFIL CITRATE
     Indication: PRODUCT USED FOR UNKNOWN INDICATION
     Dosage: 100 MG, QD (BEFORE SEXUAL ACTIVITY)
     Route: 048
     Dates: start: 20120808, end: 20130208
  74. ABILIFY [Suspect]
     Active Substance: ARIPIPRAZOLE
     Indication: BIPOLAR DISORDER
     Dosage: 15 MG, QD (STRENGTH: 30 MG) TAKE ONE HALF TABLET
     Route: 048
     Dates: start: 20120624, end: 20130124
  75. ABILIFY [Suspect]
     Active Substance: ARIPIPRAZOLE
     Dosage: 15 MG, QD (STRENGTH: 30 MG) TAKE ONE HALF TABLET
     Route: 048
     Dates: start: 20130108, end: 20140109
  76. OXYCODONE HYDROCHLORIDE. [Concomitant]
     Active Substance: OXYCODONE HYDROCHLORIDE
     Dosage: STRENGTH: 5 MG, TAKE ONE/TWO TABLET AS NEEDED EVERY 8 HRS
     Route: 048
     Dates: start: 20160307, end: 20160406
  77. OXYCODONE HYDROCHLORIDE. [Concomitant]
     Active Substance: OXYCODONE HYDROCHLORIDE
     Dosage: STRENGTH: 5 MG, TAKE ONE/TWO TABLET AS NEEDED EVERY 8 HRS
     Route: 048
     Dates: start: 20151222, end: 20160121
  78. OXYCODONE HYDROCHLORIDE. [Concomitant]
     Active Substance: OXYCODONE HYDROCHLORIDE
     Dosage: STRENGTH: 5 MG, TAKE ONE/TWO TABLET AS NEEDED EVERY 8 HRS
     Route: 048
     Dates: start: 20150203, end: 20150305
  79. OXYCODONE HYDROCHLORIDE. [Concomitant]
     Active Substance: OXYCODONE HYDROCHLORIDE
     Dosage: STRENGTH: 5 MG, TAKE ONE/TWO TABLET AS NEEDED EVERY 8 HRS
     Route: 048
     Dates: start: 20141027, end: 20141116
  80. OXYCODONE HYDROCHLORIDE. [Concomitant]
     Active Substance: OXYCODONE HYDROCHLORIDE
     Dosage: STRENGTH: 5 MG, TAKE ONE/TWO TABLET AS NEEDED EVERY 8 HRS
     Route: 048
     Dates: start: 20130528, end: 20130627
  81. TAMSULOSIN HCL [Concomitant]
     Active Substance: TAMSULOSIN HYDROCHLORIDE
     Dosage: 0.4 MG, QD AFTER MEAL
     Route: 048
     Dates: start: 20120214, end: 20130214
  82. VITAMIN E [Concomitant]
     Active Substance: .ALPHA.-TOCOPHEROL
     Indication: VITAMIN SUPPLEMENTATION
     Dosage: 400 IU, QD
     Route: 048
  83. METFORMIN [Concomitant]
     Active Substance: METFORMIN HYDROCHLORIDE
     Indication: DIABETES MELLITUS
     Dosage: 100 MG, BID
     Route: 048

REACTIONS (22)
  - Ear pain [Unknown]
  - Marital problem [Unknown]
  - Snoring [Unknown]
  - Deafness neurosensory [Unknown]
  - Rhinitis [Unknown]
  - Product use in unapproved indication [Unknown]
  - Sinus disorder [Unknown]
  - Eating disorder [Unknown]
  - Dysphoria [Unknown]
  - Dyspnoea [Unknown]
  - Back pain [Unknown]
  - Economic problem [Unknown]
  - Obsessive-compulsive disorder [Unknown]
  - Fatigue [Unknown]
  - Type 2 diabetes mellitus [Unknown]
  - Weight increased [Unknown]
  - Cerumen impaction [Unknown]
  - Nasal congestion [Unknown]
  - Boredom [Unknown]
  - Neuropathy peripheral [Unknown]
  - Gambling disorder [Unknown]
  - Nephropathy [Unknown]

NARRATIVE: CASE EVENT DATE: 20120624
